FAERS Safety Report 14479676 (Version 2)
Quarter: 2018Q1

REPORT INFORMATION
  Report Type: Report from Study
  Country: NL (occurrence: NL)
  Receive Date: 20180202
  Receipt Date: 20180210
  Transmission Date: 20180509
  Serious: Yes (Death)
  Sender: FDA-Public Use
  Company Number: PHHY2018NL016583

PATIENT
  Sex: Female

DRUGS (1)
  1. ZOMETA [Suspect]
     Active Substance: ZOLEDRONIC ACID
     Indication: BREAST CANCER METASTATIC
     Dosage: 1 DF PER 12 WEEKS
     Route: 042

REACTIONS (2)
  - Ill-defined disorder [Fatal]
  - Inappropriate schedule of drug administration [Unknown]
